FAERS Safety Report 4941094-4 (Version None)
Quarter: 2006Q1

REPORT INFORMATION
  Report Type: 
  Country: None (occurrence: None)
  Receive Date: 20060313
  Receipt Date: 20060307
  Transmission Date: 20060701
  Serious: Yes (Death)
  Sender: FDA-Public Use
  Company Number: 2006GB00398

PATIENT
  Age: 70 Year
  Sex: Male
  Weight: 100 kg

DRUGS (4)
  1. BICALUTAMIDE [Suspect]
     Indication: PROSTATE CANCER
     Route: 048
  2. NIFEDIPINE [Concomitant]
     Indication: HYPERTENSION
     Route: 065
  3. CANDESARTAN [Concomitant]
     Indication: HYPERTENSION
     Route: 065
  4. DICLOFENAC EPOLAMINE PATCH [Concomitant]
     Indication: PAIN
     Dosage: 50 MG TID PRN
     Route: 065

REACTIONS (2)
  - GASTROINTESTINAL HAEMORRHAGE [None]
  - THROMBOCYTOPENIA [None]
